APPROVED DRUG PRODUCT: EUTRON
Active Ingredient: METHYCLOTHIAZIDE; PARGYLINE HYDROCHLORIDE
Strength: 5MG;25MG
Dosage Form/Route: TABLET;ORAL
Application: N016047 | Product #001
Applicant: ABBOTT LABORATORIES PHARMACEUTICAL PRODUCTS DIV
Approved: Approved Prior to Jan 1, 1982 | RLD: No | RS: No | Type: DISCN